FAERS Safety Report 10390032 (Version 1)
Quarter: 2014Q3

REPORT INFORMATION
  Report Type: Spontaneous
  Country: GB (occurrence: None)
  Receive Date: 20140813
  Receipt Date: 20140813
  Transmission Date: 20150326
  Serious: Yes (Other)
  Sender: FDA-Public Use
  Company Number: AUR-APL-2014-08283

PATIENT
  Age: 30 Year
  Sex: Male
  Weight: 81.2 kg

DRUGS (2)
  1. SERTRALINE [Suspect]
     Active Substance: SERTRALINE HYDROCHLORIDE
     Indication: ANXIETY
     Route: 048
     Dates: start: 20121101
  2. LORATADINE. [Concomitant]
     Active Substance: LORATADINE

REACTIONS (11)
  - Muscle contractions involuntary [None]
  - Hyperhidrosis [None]
  - Bruxism [None]
  - Feeling abnormal [None]
  - Urticaria [None]
  - Agitation [None]
  - Haemorrhoids [None]
  - Dyspnoea [None]
  - Hot flush [None]
  - Myalgia [None]
  - Muscle tightness [None]

NARRATIVE: CASE EVENT DATE: 20121101
